FAERS Safety Report 14636587 (Version 2)
Quarter: 2018Q1

REPORT INFORMATION
  Report Type: Spontaneous
  Country: US (occurrence: US)
  Receive Date: 20180314
  Receipt Date: 20180316
  Transmission Date: 20180509
  Serious: Yes (Other)
  Sender: FDA-Public Use
  Company Number: US-PURDUE PHARMA-USA-2018-0143009

PATIENT
  Sex: Female

DRUGS (3)
  1. FENTANYL. [Concomitant]
     Active Substance: FENTANYL
     Indication: PAIN
     Dosage: 50 MCG, UNK
     Route: 062
     Dates: start: 2006
  2. FENTANYL. [Concomitant]
     Active Substance: FENTANYL
     Dosage: 75 MCG, UNK
     Route: 065
  3. OXYCODONE HYDROCHLORIDE. [Suspect]
     Active Substance: OXYCODONE HYDROCHLORIDE
     Indication: PAIN
     Dosage: 10 MG, UNK
     Route: 048
     Dates: start: 2006

REACTIONS (22)
  - Endometriosis [Unknown]
  - Anal prolapse [Not Recovered/Not Resolved]
  - Sciatica [Unknown]
  - Defaecation disorder [Not Recovered/Not Resolved]
  - Surgery [Unknown]
  - Unevaluable event [Unknown]
  - Mobility decreased [Recovered/Resolved]
  - Urethral prolapse [Not Recovered/Not Resolved]
  - Oophorectomy [Not Recovered/Not Resolved]
  - Infection [Not Recovered/Not Resolved]
  - Vaginal prolapse [Not Recovered/Not Resolved]
  - Muscle spasms [Recovered/Resolved]
  - Intervertebral disc degeneration [Not Recovered/Not Resolved]
  - Cholecystectomy [Not Recovered/Not Resolved]
  - Hysterectomy [Not Recovered/Not Resolved]
  - Pelvic floor muscle weakness [Not Recovered/Not Resolved]
  - Gastrointestinal disorder [Unknown]
  - Impaired gastric emptying [Not Recovered/Not Resolved]
  - Spinal operation [Unknown]
  - Intestinal resection [Not Recovered/Not Resolved]
  - Colostomy [Not Recovered/Not Resolved]
  - Lumbosacral plexopathy [Not Recovered/Not Resolved]

NARRATIVE: CASE EVENT DATE: 2008
